APPROVED DRUG PRODUCT: TAGAMET
Active Ingredient: CIMETIDINE
Strength: 800MG **Federal Register determination that product was not discontinued or withdrawn for safety or effectiveness reasons**
Dosage Form/Route: TABLET;ORAL
Application: N017920 | Product #005
Applicant: GLAXOSMITHKLINE
Approved: Apr 30, 1986 | RLD: Yes | RS: No | Type: DISCN